FAERS Safety Report 23126787 (Version 1)
Quarter: 2023Q4

REPORT INFORMATION
  Report Type: Spontaneous
  Country: None (occurrence: ES)
  Receive Date: 20231030
  Receipt Date: 20231030
  Transmission Date: 20240110
  Serious: Yes (Life-Threatening, Hospitalization)
  Sender: FDA-Public Use
  Company Number: ES-AEMPS-1439926

PATIENT
  Age: 47 Year
  Sex: Male
  Weight: 89.5 kg

DRUGS (2)
  1. OXYGEN [Suspect]
     Active Substance: OXYGEN
     Indication: Necrotising fasciitis
     Route: 055
     Dates: start: 20230614, end: 20230629
  2. TREMFYA [Concomitant]
     Active Substance: GUSELKUMAB

REACTIONS (4)
  - Respiratory arrest [Recovered/Resolved]
  - Paraesthesia [Recovered/Resolved]
  - Hyperoxia [Recovered/Resolved]
  - Seizure [Recovered/Resolved]

NARRATIVE: CASE EVENT DATE: 20230629
